FAERS Safety Report 24170667 (Version 1)
Quarter: 2024Q3

REPORT INFORMATION
  Report Type: Spontaneous
  Country: US (occurrence: None)
  Receive Date: 20240802
  Receipt Date: 20240802
  Transmission Date: 20241016
  Serious: No
  Sender: Public
  Company Number: None

PATIENT
  Age: 85 Year
  Sex: Female
  Weight: 81.65 kg

DRUGS (1)
  1. VTAMA [Suspect]
     Active Substance: TAPINAROF
     Indication: Psoriasis
     Dosage: APPLY A THIN LAYER TO AFFECTED AREA(S) ON HANDS AND ARMS ONCE DAILY AS DIRECTED
     Route: 061
     Dates: start: 202401

REACTIONS (2)
  - Abscess [None]
  - Gastrointestinal disorder [None]
